FAERS Safety Report 23603886 (Version 4)
Quarter: 2024Q2

REPORT INFORMATION
  Report Type: Spontaneous
  Country: US (occurrence: US)
  Receive Date: 20240307
  Receipt Date: 20240530
  Transmission Date: 20240716
  Serious: No
  Sender: FDA-Public Use
  Company Number: US-BRISTOL-MYERS SQUIBB COMPANY-2024-036988

PATIENT
  Age: 80 Year
  Sex: Female

DRUGS (6)
  1. REVLIMID [Suspect]
     Active Substance: LENALIDOMIDE
     Indication: Plasma cell myeloma
     Route: 048
     Dates: start: 20240301, end: 20240305
  2. REVLIMID [Suspect]
     Active Substance: LENALIDOMIDE
     Route: 048
     Dates: end: 20240305
  3. ASCORBIC ACID;FERROUS GLUCONATE [Concomitant]
     Indication: Product used for unknown indication
     Dosage: FERROUS GLUCONATE 325 MG DAILY
  4. FLUTICASONE [Concomitant]
     Active Substance: FLUTICASONE
     Indication: Product used for unknown indication
  5. ACYCLOVIR [Concomitant]
     Active Substance: ACYCLOVIR
     Indication: Product used for unknown indication
  6. ASPIRIN [Concomitant]
     Active Substance: ASPIRIN
     Indication: Product used for unknown indication

REACTIONS (5)
  - COVID-19 [Unknown]
  - Product dispensing error [Unknown]
  - Incorrect dose administered [Unknown]
  - Blood glucose fluctuation [Unknown]
  - Swelling [Unknown]

NARRATIVE: CASE EVENT DATE: 20240301
